FAERS Safety Report 17898391 (Version 2)
Quarter: 2020Q2

REPORT INFORMATION
  Report Type: Spontaneous
  Country: PT (occurrence: PT)
  Receive Date: 20200616
  Receipt Date: 20200618
  Transmission Date: 20200714
  Serious: Yes (Other)
  Sender: FDA-Public Use
  Company Number: PT-AUROBINDO-AUR-APL-2020-028994

PATIENT
  Age: 41 Year
  Sex: Male

DRUGS (5)
  1. CARBAMAZAPINE [Suspect]
     Active Substance: CARBAMAZEPINE
     Dosage: UNK
     Route: 003
  2. AMOXICILLIN. [Suspect]
     Active Substance: AMOXICILLIN
     Indication: ALLERGY TEST
     Dosage: UNK
     Route: 065
  3. AMOXICILLIN. [Suspect]
     Active Substance: AMOXICILLIN
     Dosage: UNK
     Route: 003
  4. AMPICILLIN [Suspect]
     Active Substance: AMPICILLIN
     Indication: PRODUCT USED FOR UNKNOWN INDICATION
     Dosage: UNK
     Route: 065
  5. CARBAMAZAPINE [Suspect]
     Active Substance: CARBAMAZEPINE
     Indication: ALLERGY TEST
     Dosage: UNK
     Route: 065

REACTIONS (2)
  - Drug reaction with eosinophilia and systemic symptoms [Unknown]
  - Off label use [Unknown]
